FAERS Safety Report 22046668 (Version 1)
Quarter: 2023Q1

REPORT INFORMATION
  Report Type: Spontaneous
  Country: GB (occurrence: GB)
  Receive Date: 20230228
  Receipt Date: 20230228
  Transmission Date: 20230417
  Serious: Yes (Hospitalization, Disabling, Other)
  Sender: FDA-Public Use
  Company Number: None

PATIENT
  Sex: Female

DRUGS (3)
  1. VENLAFAXINE [Suspect]
     Active Substance: VENLAFAXINE HYDROCHLORIDE
     Indication: Product used for unknown indication
     Dosage: 300 MILLIGRAM DAILY; MORNING,
     Route: 065
  2. OLANZAPINE [Suspect]
     Active Substance: OLANZAPINE
     Indication: Product used for unknown indication
     Route: 065
  3. LITHIUM [Suspect]
     Active Substance: LITHIUM
     Indication: Product used for unknown indication
     Dosage: 600 MILLIGRAM DAILY; EVENING,
     Route: 065

REACTIONS (13)
  - Coordination abnormal [Unknown]
  - Disorientation [Unknown]
  - Dizziness [Unknown]
  - Diplopia [Unknown]
  - Toxicity to various agents [Unknown]
  - Memory impairment [Unknown]
  - Posture abnormal [Unknown]
  - Seizure [Unknown]
  - Thirst [Unknown]
  - Micturition urgency [Unknown]
  - Vomiting [Unknown]
  - Communication disorder [Unknown]
  - Balance disorder [Unknown]
